FAERS Safety Report 18026023 (Version 2)
Quarter: 2020Q3

REPORT INFORMATION
  Report Type: Report from Study
  Country: CA (occurrence: CA)
  Receive Date: 20200715
  Receipt Date: 20200724
  Transmission Date: 20201103
  Serious: Yes (Disabling, Other)
  Sender: FDA-Public Use
  Company Number: NVSC2020CA192070

PATIENT
  Age: 49 Year
  Sex: Male
  Weight: 101 kg

DRUGS (4)
  1. TRAMETINIB [Suspect]
     Active Substance: TRAMETINIB
     Dosage: REDUCED TO HALF DOSE
     Route: 048
  2. TRAMETINIB [Suspect]
     Active Substance: TRAMETINIB
     Indication: GLIOBLASTOMA
     Dosage: 2 MG, QD
     Route: 048
     Dates: start: 20200213, end: 20200304
  3. DABRAFENIB [Suspect]
     Active Substance: DABRAFENIB
     Indication: GLIOBLASTOMA
     Dosage: 150 MG, BID
     Route: 048
     Dates: start: 20200213, end: 20200304
  4. DABRAFENIB [Suspect]
     Active Substance: DABRAFENIB
     Dosage: REDUCED TO HALF DOSE
     Route: 048

REACTIONS (6)
  - Malignant neoplasm progression [Not Recovered/Not Resolved]
  - Seizure [Unknown]
  - Rash pruritic [Recovering/Resolving]
  - Glioblastoma [Not Recovered/Not Resolved]
  - Fatigue [Recovering/Resolving]
  - General physical health deterioration [Unknown]

NARRATIVE: CASE EVENT DATE: 202003
